FAERS Safety Report 8283676 (Version 4)
Quarter: 2014Q1

REPORT INFORMATION
  Report Type: Spontaneous
  Country: BR (occurrence: BR)
  Receive Date: 20111212
  Receipt Date: 20140317
  Transmission Date: 20141002
  Serious: No
  Sender: FDA-Public Use
  Company Number: BR-JNJFOC-20111201578

PATIENT
  Age: 74 Year
  Sex: Female

DRUGS (2)
  1. DUROGESIC D TRANS [Suspect]
     Indication: ANALGESIC THERAPY
     Route: 062
     Dates: start: 20111130
  2. METADON [Concomitant]
     Indication: PRODUCT USED FOR UNKNOWN INDICATION
     Route: 065

REACTIONS (5)
  - Product quality issue [Unknown]
  - Product packaging quantity issue [Unknown]
  - Night sweats [Unknown]
  - Wrong technique in drug usage process [Unknown]
  - Drug ineffective [Unknown]
